FAERS Safety Report 5162299-6 (Version None)
Quarter: 2006Q4

REPORT INFORMATION
  Report Type: 
  Country: None (occurrence: None)
  Receive Date: 20060919
  Receipt Date: 20060816
  Transmission Date: 20070319
  Serious: No
  Sender: FDA-Public Use
  Company Number: 2006US001868

PATIENT
  Age: 69 Year
  Sex: Female

DRUGS (7)
  1. VESICARE [Suspect]
     Indication: HYPERTONIC BLADDER
     Dosage: 10 MG ORAL
     Route: 048
  2. ZETIA [Concomitant]
  3. LESCOL [Concomitant]
  4. TIMOLOL (TIMOLOL MALEATE) [Concomitant]
  5. BENICAR [Concomitant]
  6. XALATAN [Concomitant]
  7. FLEXERIL [Concomitant]

REACTIONS (1)
  - DRUG INEFFECTIVE [None]
